FAERS Safety Report 15541366 (Version 1)
Quarter: 2018Q4

REPORT INFORMATION
  Report Type: Spontaneous
  Country: FR (occurrence: FR)
  Receive Date: 20181023
  Receipt Date: 20181023
  Transmission Date: 20190205
  Serious: Yes (Hospitalization)
  Sender: FDA-Public Use
  Company Number: FR-PFIZER INC-2018414036

PATIENT
  Age: 43 Year
  Sex: Female
  Weight: 61 kg

DRUGS (5)
  1. CORTANCYL [Concomitant]
     Active Substance: PREDNISONE
     Route: 048
  2. CHAMPIX [Suspect]
     Active Substance: VARENICLINE TARTRATE
     Indication: EX-TOBACCO USER
     Route: 048
     Dates: start: 201705, end: 20180809
  3. PLAQUENIL [Concomitant]
     Active Substance: HYDROXYCHLOROQUINE SULFATE
     Route: 048
  4. ASPIRINE PROTECT [Concomitant]
     Active Substance: ASPIRIN
     Route: 048
  5. OMEPRAZOLE. [Concomitant]
     Active Substance: OMEPRAZOLE
     Route: 048

REACTIONS (1)
  - Extremity necrosis [Recovered/Resolved with Sequelae]

NARRATIVE: CASE EVENT DATE: 20180807
